FAERS Safety Report 13156179 (Version 2)
Quarter: 2018Q2

REPORT INFORMATION
  Report Type: Spontaneous
  Country: JP (occurrence: JP)
  Receive Date: 20170126
  Receipt Date: 20180629
  Transmission Date: 20180711
  Serious: Yes (Hospitalization)
  Sender: FDA-Public Use
  Company Number: JP-EISAI MEDICAL RESEARCH-EC-2017-024210

PATIENT
  Age: 51 Year
  Sex: Male

DRUGS (2)
  1. LENVIMA [Suspect]
     Active Substance: LENVATINIB
     Indication: ANAPLASTIC THYROID CANCER
     Route: 048
     Dates: start: 20160204, end: 20160315
  2. LENVIMA [Suspect]
     Active Substance: LENVATINIB
     Route: 048
     Dates: start: 20160316, end: 20160326

REACTIONS (3)
  - Necrosis [Unknown]
  - Drug ineffective [Not Recovered/Not Resolved]
  - Necrotising soft tissue infection [Unknown]

NARRATIVE: CASE EVENT DATE: 20160312
